FAERS Safety Report 26179129 (Version 1)
Quarter: 2025Q4

REPORT INFORMATION
  Report Type: Spontaneous
  Country: IN (occurrence: IN)
  Receive Date: 20251219
  Receipt Date: 20251219
  Transmission Date: 20260118
  Serious: Yes (Hospitalization, Other)
  Sender: CIPLA
  Company Number: IN-MLMSERVICE-20251201-PI733214-00039-1

PATIENT

DRUGS (2)
  1. ACYCLOVIR [Suspect]
     Active Substance: ACYCLOVIR
     Indication: Herpes zoster meningoencephalitis
     Dosage: 5 MILLIGRAM/KILOGRAM, QD
     Route: 042
  2. ACYCLOVIR [Suspect]
     Active Substance: ACYCLOVIR
     Dosage: 2.5 MILLIGRAM/KILOGRAM, QD
     Route: 042

REACTIONS (3)
  - Depressed level of consciousness [Recovered/Resolved]
  - Mental status changes [Recovered/Resolved]
  - Condition aggravated [Recovered/Resolved]
